FAERS Safety Report 11596031 (Version 11)
Quarter: 2016Q3

REPORT INFORMATION
  Report Type: Report from Study
  Country: BR (occurrence: BR)
  Receive Date: 20151006
  Receipt Date: 20160805
  Transmission Date: 20161109
  Serious: Yes (Death, Hospitalization, Other)
  Sender: FDA-Public Use
  Company Number: PHHY2015BR120100

PATIENT
  Age: 20 Year
  Sex: Female
  Weight: 80 kg

DRUGS (6)
  1. EXJADE [Suspect]
     Active Substance: DEFERASIROX
     Indication: APLASIA PURE RED CELL
     Dosage: 2000 MG (25 MG/KG), QD
     Route: 048
     Dates: start: 20130120
  2. EXJADE [Suspect]
     Active Substance: DEFERASIROX
     Indication: CONGENITAL APLASTIC ANAEMIA
  3. FOLIC ACID. [Concomitant]
     Active Substance: FOLIC ACID
     Indication: ANAEMIA
     Dosage: 1 DF, QD
     Route: 048
  4. EXJADE [Suspect]
     Active Substance: DEFERASIROX
     Indication: HAEMOLYTIC ANAEMIA
  5. CALCIUM CARBONATE. [Concomitant]
     Active Substance: CALCIUM CARBONATE
     Indication: BONE DISORDER
     Dosage: 1 DF, QD
     Route: 048
  6. PIRAMIZINA [Concomitant]
     Indication: MIGRAINE
     Dosage: 1 DF, QD
     Route: 048

REACTIONS (20)
  - Bacteraemia [Unknown]
  - Thrombosis [Recovering/Resolving]
  - Nosocomial infection [Unknown]
  - Gastrointestinal infection [Unknown]
  - Drug intolerance [Unknown]
  - Somnolence [Unknown]
  - Pyrexia [Recovering/Resolving]
  - Vomiting [Unknown]
  - Bacterial test positive [Recovering/Resolving]
  - Nausea [Unknown]
  - Death [Fatal]
  - Haematemesis [Unknown]
  - Bone marrow failure [Unknown]
  - Swelling [Unknown]
  - Coagulopathy [Unknown]
  - Gastric infection [Recovering/Resolving]
  - Malaise [Unknown]
  - Urinary tract infection [Unknown]
  - Eating disorder [Unknown]
  - Weight decreased [Unknown]

NARRATIVE: CASE EVENT DATE: 201508
